FAERS Safety Report 14963947 (Version 1)
Quarter: 2018Q2

REPORT INFORMATION
  Report Type: Spontaneous
  Country: CO (occurrence: CO)
  Receive Date: 20180601
  Receipt Date: 20180601
  Transmission Date: 20180711
  Serious: Yes (Life-Threatening)
  Sender: FDA-Public Use
  Company Number: CO-LPDUSPRD-20180948

PATIENT
  Age: 42 Year
  Sex: Female

DRUGS (1)
  1. FERINJECT [Suspect]
     Active Substance: FERRIC CARBOXYMALTOSE
     Dosage: 1 G, SINGLE DOSE
     Route: 041
     Dates: start: 20180518, end: 20180518

REACTIONS (3)
  - Rash generalised [Unknown]
  - Respiratory distress [Unknown]
  - Pruritus [Unknown]

NARRATIVE: CASE EVENT DATE: 20180518
